FAERS Safety Report 7321770-9 (Version None)
Quarter: 2011Q1

REPORT INFORMATION
  Report Type: 
  Country: None (occurrence: None)
  Receive Date: 20110223
  Receipt Date: 20110223
  Transmission Date: 20110831
  Serious: Yes (Life-Threatening, Other)
  Sender: FDA-Public Use
  Company Number: None

PATIENT
  Age: 52 Year
  Sex: Male
  Weight: 70.3075 kg

DRUGS (1)
  1. OXYCONTIN HCL  10MG; 20MG; 40MG; 80MG PURDUE [Suspect]
     Indication: ANALGESIC THERAPY
     Dosage: 10MG; 20MG; 40MG; 80MG 2X DAILY PO
     Route: 048
     Dates: start: 20101001, end: 20110221

REACTIONS (6)
  - VOMITING [None]
  - MEDICATION RESIDUE [None]
  - HEADACHE [None]
  - INADEQUATE ANALGESIA [None]
  - DRUG EFFECT DECREASED [None]
  - CONSTIPATION [None]
